FAERS Safety Report 15720472 (Version 1)
Quarter: 2018Q4

REPORT INFORMATION
  Report Type: Spontaneous
  Country: PL (occurrence: PL)
  Receive Date: 20181213
  Receipt Date: 20181213
  Transmission Date: 20190205
  Serious: Yes (Other)
  Sender: FDA-Public Use
  Company Number: PL-BAUSCH-BL-2018-033946

PATIENT
  Age: 65 Year
  Sex: Female

DRUGS (5)
  1. MIANSERIN [Interacting]
     Active Substance: MIANSERIN
     Indication: SLEEP DISORDER
     Dosage: INITIAL DOSE
     Route: 065
  2. TRAMADOL/PARACETAMOL [Suspect]
     Active Substance: ACETAMINOPHEN\TRAMADOL
     Indication: GLOSSODYNIA
     Dosage: TRAMADOL PLUS PARACETAMOL IN ONE TABLET (RESPECTIVELY 75 MG PLUS 650 MG)
     Route: 065
  3. VENLAFAXINE [Suspect]
     Active Substance: VENLAFAXINE HYDROCHLORIDE
     Indication: DEPRESSION
     Dosage: INITIAL DOSE
     Route: 065
  4. VENLAFAXINE [Interacting]
     Active Substance: VENLAFAXINE HYDROCHLORIDE
     Dosage: THEN THE DOSE INCREASED TO 225 MG DAILY
     Route: 065
  5. MIANSERIN [Interacting]
     Active Substance: MIANSERIN
     Dosage: THEN THE DOSE INCREASED TO 30 MG DAILY
     Route: 065

REACTIONS (6)
  - Glossodynia [Recovered/Resolved]
  - Increased appetite [Unknown]
  - Drug effect incomplete [Recovered/Resolved]
  - Drug interaction [Recovered/Resolved]
  - Diabetes mellitus [Unknown]
  - Blood glucose abnormal [Unknown]
